FAERS Safety Report 24399144 (Version 2)
Quarter: 2024Q4

REPORT INFORMATION
  Report Type: Spontaneous
  Country: DK (occurrence: DK)
  Receive Date: 20241004
  Receipt Date: 20241011
  Transmission Date: 20250115
  Serious: Yes (Hospitalization, Other)
  Sender: PURDUE
  Company Number: DK-PURDUE-USA-2024-0312351

PATIENT
  Age: 19 Year
  Sex: Male

DRUGS (1)
  1. DRONABINOL [Suspect]
     Active Substance: DRONABINOL
     Indication: Product used for unknown indication
     Dosage: UNK
     Route: 048

REACTIONS (17)
  - Sedation [Unknown]
  - Bradycardia [Unknown]
  - Agitation [Unknown]
  - Dyspnoea [Unknown]
  - Restlessness [Unknown]
  - Sinus bradycardia [Unknown]
  - Sinus tachycardia [Unknown]
  - Consciousness fluctuating [Unknown]
  - Toxicity to various agents [Unknown]
  - Hypotension [Unknown]
  - Tachycardia [Unknown]
  - Fatigue [Unknown]
  - Panic reaction [Unknown]
  - Confusional state [Unknown]
  - Somnolence [Unknown]
  - Amnesia [Unknown]
  - Body temperature increased [Unknown]
